FAERS Safety Report 5689477-1 (Version None)
Quarter: 2008Q1

REPORT INFORMATION
  Report Type: 
  Country: None (occurrence: None)
  Receive Date: 20080331
  Receipt Date: 20080319
  Transmission Date: 20080703
  Serious: Yes (Other)
  Sender: FDA-Public Use
  Company Number: US-PFIZER INC-2008025800

PATIENT
  Sex: Female
  Weight: 72.6 kg

DRUGS (2)
  1. LYRICA [Suspect]
     Indication: ANXIETY
     Dates: start: 20080201, end: 20080201
  2. LYRICA [Suspect]
     Indication: PAIN

REACTIONS (10)
  - ANXIETY [None]
  - BODY TEMPERATURE FLUCTUATION [None]
  - CONVULSION [None]
  - DRUG WITHDRAWAL SYNDROME [None]
  - FORMICATION [None]
  - HYPERSENSITIVITY [None]
  - PANIC ATTACK [None]
  - PSYCHOTIC DISORDER [None]
  - ROSACEA [None]
  - SURGERY [None]
